FAERS Safety Report 5386326-6 (Version None)
Quarter: 2007Q3

REPORT INFORMATION
  Report Type: 
  Country: None (occurrence: None)
  Receive Date: 20070713
  Receipt Date: 20070705
  Transmission Date: 20080115
  Serious: Yes (Other)
  Sender: FDA-Public Use
  Company Number: IT-NOVOPROD-265317

PATIENT
  Age: 79 Year
  Sex: Male

DRUGS (2)
  1. NOVONORM [Suspect]
     Indication: INSULIN-REQUIRING TYPE II DIABETES MELLITUS
     Dosage: 3 MG, QD
     Route: 048
     Dates: start: 20070623, end: 20070624
  2. ZYLORIC                            /00003301/ [Concomitant]
     Indication: HYPERURICAEMIA
     Dosage: 100 MG, QD
     Dates: start: 20070623, end: 20070624

REACTIONS (1)
  - ERYTHEMA [None]
